FAERS Safety Report 4278199-X (Version None)
Quarter: 2004Q1

REPORT INFORMATION
  Report Type: 
  Country: None (occurrence: None)
  Receive Date: 20040121
  Receipt Date: 20040112
  Transmission Date: 20041129
  Serious: Yes (Hospitalization, Other)
  Sender: FDA-Public Use
  Company Number: 200410287US

PATIENT
  Age: 35 Year
  Sex: Female

DRUGS (8)
  1. LANTUS [Suspect]
     Indication: DIABETES MELLITUS
     Dosage: 16 U QD
  2. LANTUS [Suspect]
     Indication: DIABETES MELLITUS
     Dosage: 8 U QD
  3. LANTUS [Suspect]
     Indication: DIABETES MELLITUS
     Dosage: 4 U QD
  4. LANTUS [Suspect]
     Indication: DIABETES MELLITUS
     Dosage: 5 U QD
  5. SPORANOX [Suspect]
     Indication: HISTOPLASMOSIS
     Dates: start: 20031111
  6. HUMALOG [Concomitant]
  7. IMMUNOSUPPRESSIVE DRUGS [Concomitant]
  8. PREVACID [Concomitant]

REACTIONS (4)
  - BLOOD GLUCOSE DECREASED [None]
  - DRUG INTERACTION [None]
  - HISTOPLASMOSIS [None]
  - LOSS OF CONSCIOUSNESS [None]
